FAERS Safety Report 8264896-8 (Version None)
Quarter: 2012Q2

REPORT INFORMATION
  Report Type: 
  Country: None (occurrence: None)
  Receive Date: 20120403
  Receipt Date: 20120321
  Transmission Date: 20120825
  Serious: Yes (Hospitalization)
  Sender: FDA-Public Use
  Company Number: 1234555

PATIENT
  Age: 17 Year
  Sex: Female
  Weight: 70 kg

DRUGS (17)
  1. DOXORUBICIN HCL [Concomitant]
  2. MIDAZOLAM [Concomitant]
  3. PREDNISONE [Concomitant]
  4. CYTARABINE [Concomitant]
  5. HYDROCORTISONE [Concomitant]
  6. RANITIDINE [Concomitant]
  7. LANSOPRAZOLE [Concomitant]
  8. ONDANSETRON [Concomitant]
  9. FENTANYL CITRATE [Concomitant]
  10. (CHOLECALCIFEROL) [Concomitant]
  11. DIMENHYDRINATE [Concomitant]
  12. AMITRIPTYLINE HYDROCHLORIDE [Concomitant]
  13. SULFAMETHOXAZOLE AND TRIMETHOPRIM [Concomitant]
  14. VINCRISTINE SULFATE [Suspect]
     Indication: PRODUCT USED FOR UNKNOWN INDICATION
     Dosage: 2.0MG, ONCE, INTRAVENOUS (NOT OTHERWISE SPECIFIED)
     Route: 042
  15. (ZINECARD /01200101/) [Concomitant]
  16. METHOTREXATE [Concomitant]
  17. (DOCUSATE) [Concomitant]

REACTIONS (2)
  - ORTHOSTATIC HYPOTENSION [None]
  - INAPPROPRIATE ANTIDIURETIC HORMONE SECRETION [None]
